FAERS Safety Report 12639649 (Version 2)
Quarter: 2016Q3

REPORT INFORMATION
  Report Type: Spontaneous
  Country: IT (occurrence: IT)
  Receive Date: 20160810
  Receipt Date: 20160909
  Transmission Date: 20161109
  Serious: Yes (Hospitalization)
  Sender: FDA-Public Use
  Company Number: IT-TEVA-682557ACC

PATIENT
  Age: 26 Year
  Sex: Male
  Weight: 80 kg

DRUGS (8)
  1. PROGESTERONE. [Suspect]
     Active Substance: PROGESTERONE
     Indication: ANDROGENETIC ALOPECIA
     Dosage: 1 % CYCLICAL
     Route: 061
     Dates: start: 20151101, end: 20160525
  2. HYDROCORTISONE. [Concomitant]
     Active Substance: HYDROCORTISONE
  3. PROPECIA [Suspect]
     Active Substance: FINASTERIDE
     Dosage: 5 MILLIGRAM DAILY;
  4. ALPHA ESTRADIOL [Suspect]
     Active Substance: ALFATRADIOL
     Indication: ANDROGENETIC ALOPECIA
     Dosage: .02 % CYCLICAL
     Route: 061
     Dates: start: 20151101, end: 20160525
  5. ALPHA ESTRADIOL [Suspect]
     Active Substance: ALFATRADIOL
  6. PROPECIA [Suspect]
     Active Substance: FINASTERIDE
     Indication: ANDROGENETIC ALOPECIA
     Dosage: 1 MILLIGRAM DAILY;
     Route: 048
  7. MINOXIDIL. [Suspect]
     Active Substance: MINOXIDIL
     Indication: ANDROGENETIC ALOPECIA
     Dosage: 5 % CYCLICAL
     Route: 061
     Dates: start: 20151101, end: 20160525
  8. TRANSCUTOL [Concomitant]

REACTIONS (1)
  - Cerebral infarction [Recovered/Resolved with Sequelae]

NARRATIVE: CASE EVENT DATE: 20160525
